FAERS Safety Report 23030107 (Version 4)
Quarter: 2023Q4

REPORT INFORMATION
  Report Type: Spontaneous
  Country: JP (occurrence: JP)
  Receive Date: 20231005
  Receipt Date: 20231025
  Transmission Date: 20240110
  Serious: Yes (Hospitalization)
  Sender: FDA-Public Use
  Company Number: JP-SA-2023SA300323

PATIENT
  Age: 43 Year
  Sex: Female
  Weight: 70.4 kg

DRUGS (7)
  1. DUPIXENT [Suspect]
     Active Substance: DUPILUMAB
     Indication: Asthma
     Dosage: 300 MG, QOW
     Route: 058
     Dates: start: 20230831, end: 20230919
  2. PIPERACILLIN SODIUM\TAZOBACTAM SODIUM [Suspect]
     Active Substance: PIPERACILLIN SODIUM\TAZOBACTAM SODIUM
     Indication: Product used for unknown indication
     Dosage: 4.5 G, TID
     Route: 041
     Dates: start: 20230925, end: 20230929
  3. SITAFLOXACIN [Suspect]
     Active Substance: SITAFLOXACIN
     Indication: Product used for unknown indication
     Dosage: 100 MG, BID
     Route: 048
     Dates: start: 20230914, end: 20230916
  4. SITAFLOXACIN [Suspect]
     Active Substance: SITAFLOXACIN
     Dosage: 100 MG, BID
     Route: 048
     Dates: start: 20230919, end: 20230919
  5. SITAFLOXACIN [Suspect]
     Active Substance: SITAFLOXACIN
     Dosage: 100 MG, BID
     Route: 048
     Dates: start: 20230922, end: 20230922
  6. GARENOXACIN MESYLATE [Suspect]
     Active Substance: GARENOXACIN MESYLATE
     Indication: Product used for unknown indication
     Dosage: 200 MG, BID
     Route: 048
     Dates: start: 20230906, end: 20230906
  7. GARENOXACIN MESYLATE [Suspect]
     Active Substance: GARENOXACIN MESYLATE
     Dosage: 200 MG, BID
     Route: 048
     Dates: start: 20230908, end: 20230909

REACTIONS (1)
  - Pyrexia [Recovering/Resolving]
